FAERS Safety Report 5249023-3 (Version None)
Quarter: 2007Q1

REPORT INFORMATION
  Report Type: 
  Country: None (occurrence: None)
  Receive Date: 20070228
  Receipt Date: 20060601
  Transmission Date: 20070707
  Serious: Yes (Hospitalization, Other)
  Sender: FDA-Public Use
  Company Number: US-GLAXOSMITHKLINE-A0607602A

PATIENT
  Age: 45 Year
  Sex: Female

DRUGS (2)
  1. VALTREX [Suspect]
     Indication: HERPES ZOSTER
     Route: 048
     Dates: start: 20060522, end: 20060527
  2. NO CONCURRENT MEDICATION [Concomitant]

REACTIONS (1)
  - LEUKOCYTOCLASTIC VASCULITIS [None]
